FAERS Safety Report 6673026-5 (Version None)
Quarter: 2010Q2

REPORT INFORMATION
  Report Type: 
  Country: None (occurrence: None)
  Receive Date: 20100408
  Receipt Date: 20100401
  Transmission Date: 20101027
  Serious: Yes (Hospitalization)
  Sender: FDA-Public Use
  Company Number: B0646049A

PATIENT
  Sex: Female

DRUGS (1)
  1. CLAVULIN [Suspect]
     Indication: TONSILLITIS
     Dosage: 2TAB PER DAY
     Route: 048
     Dates: start: 20100218, end: 20100221

REACTIONS (2)
  - ANGIOEDEMA [None]
  - RASH MACULO-PAPULAR [None]
